FAERS Safety Report 23600995 (Version 1)
Quarter: 2024Q1

REPORT INFORMATION
  Report Type: Spontaneous
  Country: DK (occurrence: DK)
  Receive Date: 20240306
  Receipt Date: 20240306
  Transmission Date: 20240409
  Serious: Yes (Other)
  Sender: FDA-Public Use
  Company Number: DK-AMGEN-DNKSP2024042965

PATIENT

DRUGS (1)
  1. PROLIA [Suspect]
     Active Substance: DENOSUMAB
     Indication: Osteoporosis
     Dosage: UNK
     Route: 065

REACTIONS (11)
  - Neoplasm malignant [Unknown]
  - Breast cancer [Unknown]
  - Vulval cancer [Unknown]
  - Vaginal cancer [Unknown]
  - Cervix carcinoma [Unknown]
  - Uterine cancer [Unknown]
  - Ovarian cancer [Unknown]
  - Penile cancer [Unknown]
  - Testis cancer [Unknown]
  - Prostate cancer [Unknown]
  - Malignant neoplasm of placenta [Unknown]
